FAERS Safety Report 8329095-X (Version None)
Quarter: 2012Q2

REPORT INFORMATION
  Report Type: 
  Country: None (occurrence: None)
  Receive Date: 20120502
  Receipt Date: 20120426
  Transmission Date: 20120825
  Serious: Yes (Death)
  Sender: FDA-Public Use
  Company Number: GR-PFIZER INC-2012104533

PATIENT
  Age: 61 Year
  Sex: Male

DRUGS (3)
  1. METHOTREXATE SODIUM [Suspect]
     Indication: LEUKAEMIA
  2. DOXORUBICIN HCL [Suspect]
     Indication: LEUKAEMIA
  3. CYTARABINE [Suspect]
     Indication: LEUKAEMIA

REACTIONS (1)
  - DEATH [None]
